FAERS Safety Report 17437890 (Version 1)
Quarter: 2020Q1

REPORT INFORMATION
  Report Type: Report from Study
  Country: US (occurrence: US)
  Receive Date: 20200219
  Receipt Date: 20200219
  Transmission Date: 20200409
  Serious: Yes (Life-Threatening, Hospitalization, Disabling, Other)
  Sender: FDA-Public Use
  Company Number: PHHO2018US013460

PATIENT
  Age: 13 Year
  Sex: Male
  Weight: 42.9 kg

DRUGS (4)
  1. KYMRIAH [Suspect]
     Active Substance: TISAGENLECLEUCEL
     Indication: ACUTE LYMPHOCYTIC LEUKAEMIA
     Dosage: 1 DF, ONCE/SINGLE (SINGLE INFUSION)
     Route: 042
     Dates: start: 20181214
  2. CYCLOPHOSPHAMIDE. [Concomitant]
     Active Substance: CYCLOPHOSPHAMIDE
     Indication: CHEMOTHERAPY
     Dosage: 300 UNK, UNK
     Route: 042
     Dates: start: 20181208, end: 20181211
  3. LEVETIRACETAM. [Concomitant]
     Active Substance: LEVETIRACETAM
     Indication: SEIZURE
     Dosage: 750 MG, UNK
     Route: 065
     Dates: start: 20180909, end: 20181225
  4. FLUDARABINE [Concomitant]
     Active Substance: FLUDARABINE PHOSPHATE
     Indication: CHEMOTHERAPY
     Dosage: 300 MG/M2, UNK
     Route: 042
     Dates: start: 20181208, end: 20181211

REACTIONS (23)
  - Respiratory distress [Unknown]
  - Blood creatinine increased [Unknown]
  - Encephalopathy [Recovered/Resolved]
  - Urinary incontinence [Unknown]
  - Serum ferritin increased [Unknown]
  - Cerebral atrophy [Unknown]
  - Confusional state [Unknown]
  - Apraxia [Unknown]
  - Hypertension [Recovering/Resolving]
  - Anal incontinence [Unknown]
  - Cytokine release syndrome [Recovered/Resolved]
  - Aphasia [Unknown]
  - C-reactive protein increased [Unknown]
  - Pulmonary oedema [Unknown]
  - Hypoxia [Unknown]
  - Seizure like phenomena [Unknown]
  - Hypotension [Unknown]
  - Cognitive disorder [Not Recovered/Not Resolved]
  - Pyrexia [Recovered/Resolved]
  - Thrombocytopenia [Recovered/Resolved]
  - Pyrexia [Recovered/Resolved]
  - Pyrexia [Recovered/Resolved]
  - Pyrexia [Recovered/Resolved]

NARRATIVE: CASE EVENT DATE: 20181214
